FAERS Safety Report 9111063 (Version 1)
Quarter: 2013Q1

REPORT INFORMATION
  Report Type: Spontaneous
  Country: US (occurrence: US)
  Receive Date: 20130219
  Receipt Date: 20130219
  Transmission Date: 20140127
  Serious: No
  Sender: FDA-Public Use
  Company Number: US-BRISTOL-MYERS SQUIBB COMPANY-17214669

PATIENT
  Age: 59 Year
  Sex: Male
  Weight: 86.17 kg

DRUGS (14)
  1. ORENCIA FOR INJ [Suspect]
     Route: 058
     Dates: start: 20121002
  2. ADVAIR [Concomitant]
  3. ALLOPURINOL [Concomitant]
  4. CALCIUM + VITAMIN D [Concomitant]
  5. COLCHICINE [Concomitant]
  6. CRESTOR [Concomitant]
  7. FLUTICASONE [Concomitant]
  8. FOLIC ACID [Concomitant]
  9. LISINOPRIL [Concomitant]
  10. LOVAZA [Concomitant]
  11. PREDNISONE [Concomitant]
  12. PROAIR HFA [Concomitant]
  13. SINGULAIR [Concomitant]
  14. ZOLOFT [Concomitant]

REACTIONS (1)
  - Injection site swelling [Recovered/Resolved]
